FAERS Safety Report 9193838 (Version 1)
Quarter: 2013Q1

REPORT INFORMATION
  Report Type: Spontaneous
  Country: US (occurrence: None)
  Receive Date: 20130325
  Receipt Date: 20130325
  Transmission Date: 20140127
  Serious: No
  Sender: FDA-Public Use
  Company Number: None

PATIENT
  Age: 76 Year
  Sex: Female

DRUGS (1)
  1. SELENIUM [Suspect]
     Dates: start: 20121219, end: 20121219

REACTIONS (4)
  - Eye irritation [None]
  - Chemical injury [None]
  - Eye swelling [None]
  - Eye disorder [None]
